FAERS Safety Report 4709240-5 (Version None)
Quarter: 2005Q3

REPORT INFORMATION
  Report Type: 
  Country: None (occurrence: None)
  Receive Date: 20050705
  Receipt Date: 20050621
  Transmission Date: 20060218
  Serious: Yes (Hospitalization)
  Sender: FDA-Public Use
  Company Number: 2005SP001486

PATIENT
  Age: 69 Year
  Sex: Female

DRUGS (3)
  1. LUNESTA [Suspect]
     Indication: INSOMNIA
     Dosage: 2 MG;HS;ORAL
     Route: 048
     Dates: start: 20050526, end: 20050620
  2. ZYPREXA [Concomitant]
  3. GLUCOPHAGE [Concomitant]

REACTIONS (9)
  - BIPOLAR DISORDER [None]
  - BLOOD GLUCOSE INCREASED [None]
  - CONDITION AGGRAVATED [None]
  - GRAND MAL CONVULSION [None]
  - MANIA [None]
  - MUSCLE TWITCHING [None]
  - PSYCHOTIC DISORDER [None]
  - SCHIZOAFFECTIVE DISORDER [None]
  - SCREAMING [None]
